FAERS Safety Report 22530069 (Version 1)
Quarter: 2023Q2

REPORT INFORMATION
  Report Type: Spontaneous
  Country: US (occurrence: US)
  Receive Date: 20230607
  Receipt Date: 20230607
  Transmission Date: 20230721
  Serious: Yes (Hospitalization)
  Sender: FDA-Public Use
  Company Number: US-MYLANLABS-2023M1058037

PATIENT
  Age: 65 Year
  Sex: Male

DRUGS (15)
  1. CLADRIBINE [Suspect]
     Active Substance: CLADRIBINE
     Indication: Acute myeloid leukaemia
     Dosage: UNK, CYCLE,FOR ONE CYCLE AS A PART OF CLAG-M REGIMEN
     Route: 065
  2. CLADRIBINE [Suspect]
     Active Substance: CLADRIBINE
     Dosage: UNK, CYCLE, RECEIVED SECOND CYCLE
     Route: 065
  3. MITOXANTRONE [Suspect]
     Active Substance: MITOXANTRONE HYDROCHLORIDE
     Indication: Acute myeloid leukaemia
     Dosage: UNK, CYCLE, FOR ONE CYCLE AS A PART OF CLAG-M REGIMEN
     Route: 065
  4. MITOXANTRONE [Suspect]
     Active Substance: MITOXANTRONE HYDROCHLORIDE
     Dosage: UNK, CYCLE, RECEIVED SECOND CYCLE
     Route: 065
  5. DEXAMETHASONE [Suspect]
     Active Substance: DEXAMETHASONE
     Indication: Acute myeloid leukaemia
     Dosage: UNK, CYCLE, FOR ONE CYCLE
     Route: 065
  6. DEXAMETHASONE [Suspect]
     Active Substance: DEXAMETHASONE
     Dosage: UNK, CYCLE, RECEIVED SECOND CYCLE
     Route: 065
  7. CYTARABINE [Suspect]
     Active Substance: CYTARABINE
     Indication: Acute myeloid leukaemia
     Dosage: UNK, CYCLE, FOR ONE CYCLE AS A PART OF CLAG-M REGIMEN
     Route: 065
  8. CYTARABINE [Suspect]
     Active Substance: CYTARABINE
     Dosage: UNK, CYCLE, RECEIVED SECOND CYCLE
     Route: 065
  9. FILGRASTIM [Suspect]
     Active Substance: FILGRASTIM
     Indication: Acute myeloid leukaemia
     Dosage: UNK, CYCLE, FOR ONE CYCLE AS A PART OF CLAG-M REGIMEN
     Route: 065
  10. FILGRASTIM [Suspect]
     Active Substance: FILGRASTIM
     Dosage: UNK, CYCLE, RECEIVED SECOND CYCLE
     Route: 065
  11. VINCRISTINE [Suspect]
     Active Substance: VINCRISTINE
     Indication: Acute myeloid leukaemia
     Dosage: UNK, CYCLE,FOR ONE
     Route: 065
  12. VINCRISTINE [Suspect]
     Active Substance: VINCRISTINE
     Dosage: UNK, CYCLE,RECEIVED SECOND CYCLE
     Route: 065
  13. VENETOCLAX [Suspect]
     Active Substance: VENETOCLAX
     Indication: Acute myeloid leukaemia
     Dosage: 400 MILLIGRAM, CYCLE,ORAL VENETOCLAX 400 MG DAILY ON DAYS 1-5 IN 28 DAY CYCLES
     Route: 048
  14. VENETOCLAX [Suspect]
     Active Substance: VENETOCLAX
     Dosage: UNK,VENETOCLAX THERAPY WAS RESTARTED AT REDUCED DOSE
     Route: 065
  15. DECITABINE [Suspect]
     Active Substance: DECITABINE
     Indication: Acute myeloid leukaemia
     Dosage: 20 MILLIGRAM/SQ. METER, CYCLE,IV DECITABINE 20 MG/M2 DAILY ON DAYS 1-5 IN 28 DAY CYCLES
     Route: 042

REACTIONS (1)
  - Neutropenic sepsis [Recovered/Resolved]
